FAERS Safety Report 9409415 (Version 1)
Quarter: 2013Q3

REPORT INFORMATION
  Report Type: Spontaneous
  Country: FR (occurrence: FR)
  Receive Date: 20130719
  Receipt Date: 20130719
  Transmission Date: 20140515
  Serious: Yes (Death, Hospitalization)
  Sender: FDA-Public Use
  Company Number: FR-SANOFI-AVENTIS-2013SA070434

PATIENT
  Age: 82 Year
  Sex: Male

DRUGS (8)
  1. LANTUS [Suspect]
     Indication: INSULIN-REQUIRING TYPE 2 DIABETES MELLITUS
     Route: 058
     Dates: end: 20130408
  2. TEMERIT [Suspect]
     Indication: PRODUCT USED FOR UNKNOWN INDICATION
     Route: 048
     Dates: end: 20130408
  3. ALTEISDUO [Suspect]
     Indication: HYPERTENSION
     Route: 048
     Dates: end: 20130517
  4. KALEORID [Suspect]
     Indication: HYPOKALAEMIA
     Route: 048
     Dates: end: 20130517
  5. METFORMIN [Suspect]
     Indication: INSULIN-REQUIRING TYPE 2 DIABETES MELLITUS
     Route: 048
     Dates: end: 20130523
  6. TANAKAN [Suspect]
     Indication: COGNITIVE DISORDER
     Route: 048
     Dates: end: 20130417
  7. CYCLO 3 FORT [Suspect]
     Indication: PRODUCT USED FOR UNKNOWN INDICATION
     Route: 048
     Dates: end: 20130417
  8. HEMIGOXINE NATIVELLE [Suspect]
     Indication: PRODUCT USED FOR UNKNOWN INDICATION
     Route: 048
     Dates: end: 20130403

REACTIONS (6)
  - Atrial fibrillation [Recovered/Resolved]
  - Muscular weakness [None]
  - Fall [None]
  - Electrocardiogram ST segment depression [None]
  - Overdose [None]
  - Bradycardia [None]
